FAERS Safety Report 4754331-6 (Version None)
Quarter: 2005Q3

REPORT INFORMATION
  Report Type: 
  Country: None (occurrence: None)
  Receive Date: 20050825
  Receipt Date: 20050825
  Transmission Date: 20060218
  Serious: No
  Sender: FDA-Public Use
  Company Number: None

PATIENT
  Age: 54 Year
  Sex: Male

DRUGS (1)
  1. ZOMIG [Suspect]
     Indication: MIGRAINE

REACTIONS (6)
  - ARTERIOSPASM CORONARY [None]
  - BURNING SENSATION [None]
  - CHEST DISCOMFORT [None]
  - DYSPNOEA [None]
  - EPIGASTRIC DISCOMFORT [None]
  - VENTRICULAR FIBRILLATION [None]
